FAERS Safety Report 21334822 (Version 1)
Quarter: 2022Q3

REPORT INFORMATION
  Report Type: Report from Study
  Country: DE (occurrence: DE)
  Receive Date: 20220914
  Receipt Date: 20220914
  Transmission Date: 20221026
  Serious: Yes (Hospitalization)
  Sender: FDA-Public Use
  Company Number: DE-NOVARTISPH-NVSC2021DE277324

PATIENT
  Sex: Male

DRUGS (4)
  1. UNSPECIFIED INGREDIENT [Suspect]
     Active Substance: UNSPECIFIED INGREDIENT
     Indication: Product used for unknown indication
     Dosage: UNK
     Route: 065
  2. DICLOFENAC [Suspect]
     Active Substance: DICLOFENAC
     Indication: Axial spondyloarthritis
     Dosage: 150 MG
     Route: 065
     Dates: start: 20180108
  3. DICLOFENAC [Suspect]
     Active Substance: DICLOFENAC
     Dosage: 150 MG
     Route: 065
     Dates: start: 20180801
  4. DICLOFENAC [Suspect]
     Active Substance: DICLOFENAC
     Dosage: 75 MG
     Route: 065
     Dates: start: 20190107

REACTIONS (3)
  - Cervical vertebral fracture [Unknown]
  - Fall [Unknown]
  - Dislocation of vertebra [Unknown]

NARRATIVE: CASE EVENT DATE: 20210125
